FAERS Safety Report 18007810 (Version 2)
Quarter: 2020Q3

REPORT INFORMATION
  Report Type: Spontaneous
  Country: JP (occurrence: JP)
  Receive Date: 20200710
  Receipt Date: 20200713
  Transmission Date: 20201103
  Serious: Yes (Hospitalization, Other)
  Sender: FDA-Public Use
  Company Number: JP-BRISTOL-MYERS SQUIBB COMPANY-BMS-2020-030133

PATIENT
  Age: 58 Year
  Sex: Female

DRUGS (8)
  1. YERVOY [Suspect]
     Active Substance: IPILIMUMAB
     Dosage: UNK, ONE TIME DOSE
     Route: 065
     Dates: start: 20200325, end: 20200325
  2. YERVOY [Suspect]
     Active Substance: IPILIMUMAB
     Dosage: UNK, ONE TIME DOSE
     Route: 065
     Dates: start: 20200226, end: 20200226
  3. OPDIVO [Suspect]
     Active Substance: NIVOLUMAB
     Indication: MALIGNANT MELANOMA
     Dosage: 240 MILLIGRAM, Q2WK
     Route: 041
     Dates: start: 201808, end: 201910
  4. OPDIVO [Suspect]
     Active Substance: NIVOLUMAB
     Dosage: 240 MILLIGRAM
     Route: 041
     Dates: start: 20200501, end: 20200511
  5. YERVOY [Suspect]
     Active Substance: IPILIMUMAB
     Indication: MALIGNANT MELANOMA
     Dosage: UNK, ONE TIME DOSE
     Route: 041
     Dates: start: 20200205, end: 20200205
  6. OPDIVO [Suspect]
     Active Substance: NIVOLUMAB
     Dosage: UNK, ONE TIME DOSE
     Route: 041
     Dates: start: 20200205, end: 20200205
  7. OPDIVO [Suspect]
     Active Substance: NIVOLUMAB
     Dosage: UNK
     Route: 065
     Dates: start: 20200226, end: 20200226
  8. OPDIVO [Suspect]
     Active Substance: NIVOLUMAB
     Dosage: UNK
     Route: 065
     Dates: start: 20200325, end: 20200325

REACTIONS (2)
  - Pyrexia [Unknown]
  - Liver disorder [Recovered/Resolved]

NARRATIVE: CASE EVENT DATE: 20200401
